FAERS Safety Report 4998841-5 (Version None)
Quarter: 2006Q2

REPORT INFORMATION
  Report Type: 
  Country: None (occurrence: None)
  Receive Date: 20060510
  Receipt Date: 20050414
  Transmission Date: 20061013
  Serious: Yes (Hospitalization, Disabling)
  Sender: FDA-Public Use
  Company Number: US-MERCK-0504USA02957

PATIENT
  Age: 50 Year
  Sex: Female
  Weight: 65 kg

DRUGS (7)
  1. VIOXX [Suspect]
     Indication: OSTEOARTHRITIS
     Route: 048
     Dates: start: 20020630, end: 20031008
  2. DIOVAN HCT [Concomitant]
     Indication: HYPERTENSION
     Route: 065
     Dates: start: 20000508, end: 20031008
  3. NAPROXEN [Concomitant]
     Route: 065
     Dates: start: 20020101
  4. SINGULAIR [Concomitant]
     Indication: HYPERSENSITIVITY
     Route: 065
  5. COMBIVENT [Concomitant]
     Indication: ASTHMA
     Route: 065
  6. ULTRACET [Concomitant]
     Route: 065
     Dates: start: 20020601, end: 20031001
  7. HYDROCHLOROTHIAZIDE [Concomitant]
     Indication: HYPERTENSION
     Route: 065
     Dates: start: 20030101

REACTIONS (5)
  - ADVERSE EVENT [None]
  - ARTERIAL DISORDER [None]
  - CARDIAC DISORDER [None]
  - DYSPEPSIA [None]
  - MYOCARDIAL INFARCTION [None]
